FAERS Safety Report 5930248-6 (Version None)
Quarter: 2008Q4

REPORT INFORMATION
  Report Type: 
  Country: None (occurrence: None)
  Receive Date: 20081024
  Receipt Date: 20081017
  Transmission Date: 20090506
  Serious: Yes (Hospitalization)
  Sender: FDA-Public Use
  Company Number: MY-GENENTECH-263914

PATIENT
  Sex: Female
  Weight: 51 kg

DRUGS (2)
  1. BEVACIZUMAB [Suspect]
     Indication: BREAST CANCER METASTATIC
     Dosage: 780 MG, Q3W
     Route: 042
     Dates: start: 20080326
  2. GEMCITABINE [Suspect]
     Indication: BREAST CANCER METASTATIC
     Dosage: 1875 MG, Q3W
     Route: 042
     Dates: start: 20080326

REACTIONS (5)
  - NECROTISING FASCIITIS [None]
  - PNEUMONIA ASPIRATION [None]
  - POST PROCEDURAL HAEMORRHAGE [None]
  - POSTOPERATIVE ABSCESS [None]
  - SEPSIS [None]
